FAERS Safety Report 8644886 (Version 5)
Quarter: 2012Q4

REPORT INFORMATION
  Report Type: 
  Country: US (occurrence: US)
  Receive Date: 20120702
  Receipt Date: 20120914
  Transmission Date: 20130627
  Serious: No
  Sender: FDA-Public Use
  Company Number: US-PFIZER INC-2012156995

PATIENT
  Age: 63 Year
  Sex: Female

DRUGS (2)
  1. EFFEXOR XR [Suspect]
     Indication: HOT FLUSH
     Dosage: UNK
  2. VENLAFAXINE HYDROCHLORIDE [Suspect]
     Dosage: UNK

REACTIONS (9)
  - Off label use [Unknown]
  - Drug ineffective [Unknown]
  - Feeling hot [Unknown]
  - Swelling [Unknown]
  - Rash pruritic [Unknown]
  - Sticky skin [Unknown]
  - Hyperhidrosis [Unknown]
  - Erythema [Unknown]
  - Contusion [Unknown]
